FAERS Safety Report 10231360 (Version 1)
Quarter: 2014Q2

REPORT INFORMATION
  Report Type: Spontaneous
  Country: US (occurrence: None)
  Receive Date: 20140506
  Receipt Date: 20140506
  Transmission Date: 20141212
  Serious: Yes (Life-Threatening, Hospitalization)
  Sender: FDA-Public Use
  Company Number: 1303806

PATIENT
  Age: 74 Year
  Sex: Male

DRUGS (1)
  1. AVASTIN (BEVACIZUMAB) [Suspect]
     Indication: COLON CANCER
     Dosage: 500 MG, 5TH DOSE (7.5 MG/KG 1 IN 3 WK)
     Route: 042

REACTIONS (1)
  - Pulmonary embolism [None]
